FAERS Safety Report 4351897-5 (Version None)
Quarter: 2004Q2

REPORT INFORMATION
  Report Type: 
  Country: None (occurrence: None)
  Receive Date: 20040429
  Receipt Date: 20030925
  Transmission Date: 20050107
  Serious: No
  Sender: FDA-Public Use
  Company Number: 2003-109163-NL

PATIENT
  Age: 47 Year
  Sex: Female

DRUGS (1)
  1. NUVARING [Suspect]
     Indication: CONTRACEPTION

REACTIONS (5)
  - ABDOMINAL DISTENSION [None]
  - BREAST TENDERNESS [None]
  - DYSPNOEA [None]
  - FATIGUE [None]
  - NAUSEA [None]
